FAERS Safety Report 6145654-7 (Version None)
Quarter: 2009Q2

REPORT INFORMATION
  Report Type: 
  Country: None (occurrence: None)
  Receive Date: 20090407
  Receipt Date: 20090330
  Transmission Date: 20091009
  Serious: Yes (Other)
  Sender: FDA-Public Use
  Company Number: US-JNJFOC-20090400116

PATIENT
  Sex: Female

DRUGS (3)
  1. DURAGESIC-100 [Suspect]
     Indication: SYSTEMIC LUPUS ERYTHEMATOSUS
     Route: 062
  2. COREG [Concomitant]
     Indication: HYPERTENSION
     Route: 048
  3. UNSPECIFIED MEDICATIONS [Concomitant]

REACTIONS (4)
  - HYPERALDOSTERONISM [None]
  - INAPPROPRIATE SCHEDULE OF DRUG ADMINISTRATION [None]
  - INCORRECT DRUG ADMINISTRATION DURATION [None]
  - WITHDRAWAL SYNDROME [None]
